FAERS Safety Report 9145237 (Version 1)
Quarter: 2013Q1

REPORT INFORMATION
  Report Type: Spontaneous
  Country: US (occurrence: None)
  Receive Date: 20130226
  Receipt Date: 20130226
  Transmission Date: 20140127
  Serious: Yes (Disabling)
  Sender: FDA-Public Use
  Company Number: None

PATIENT
  Age: 57 Year
  Sex: Female
  Weight: 63.5 kg

DRUGS (1)
  1. LEVAQUIN [Suspect]
     Indication: URINARY TRACT INFECTION
     Dosage: 1 PILL 1 A DAY PO
     Route: 048
     Dates: start: 20120721, end: 20120727

REACTIONS (8)
  - Arthralgia [None]
  - Myalgia [None]
  - Tendon pain [None]
  - Meniscus injury [None]
  - Joint stiffness [None]
  - Weight increased [None]
  - Abdominal pain upper [None]
  - Abdominal discomfort [None]
